FAERS Safety Report 8393082-6 (Version None)
Quarter: 2012Q1

REPORT INFORMATION
  Report Type: 
  Country: None (occurrence: None)
  Receive Date: 20120323
  Receipt Date: 20110311
  Transmission Date: 20120608
  Serious: Yes (Hospitalization)
  Sender: FDA-Public Use
  Company Number: 163-21880-11031551

PATIENT
  Age: 79 Year
  Sex: Female
  Weight: 59.4212 kg

DRUGS (23)
  1. LASIX [Concomitant]
  2. FISH OIL (FISH OIL) [Concomitant]
  3. SYNTHROID [Concomitant]
  4. MICRO-K (POTASSIUM CHLORIDE) [Concomitant]
  5. SINGULAIR [Concomitant]
  6. COLCHICINE [Concomitant]
  7. ACETAMINOPHEN [Concomitant]
  8. CENTRUM SILVER (CENTRUM SILVER) [Concomitant]
  9. ASPIRIN [Concomitant]
  10. LOVAZA [Concomitant]
  11. REVLIMID [Suspect]
     Indication: MYELODYSPLASTIC SYNDROME
     Dosage: 5 MG, 1 IN 2 D, PO ; 10 MG, DAILY X 21 DAYS, PO ; 10 MG, PO
     Route: 048
     Dates: start: 20090701
  12. REVLIMID [Suspect]
     Indication: MYELODYSPLASTIC SYNDROME
     Dosage: 5 MG, 1 IN 2 D, PO ; 10 MG, DAILY X 21 DAYS, PO ; 10 MG, PO
     Route: 048
     Dates: start: 20070401
  13. REVLIMID [Suspect]
     Indication: MYELODYSPLASTIC SYNDROME
     Dosage: 5 MG, 1 IN 2 D, PO ; 10 MG, DAILY X 21 DAYS, PO ; 10 MG, PO
     Route: 048
     Dates: start: 20070701
  14. ACIPHEX [Concomitant]
  15. ACTONEL [Concomitant]
  16. PRESERVATION (ALL OTHER THERAPEUTIC PRODUCTS) [Concomitant]
  17. GAS X (DIMETICONE, ACTIVATED) [Concomitant]
  18. PRAVACHOL [Concomitant]
  19. LISINOPRIL [Concomitant]
  20. ASCORBIC ACID [Concomitant]
  21. VITAMIN D [Concomitant]
  22. CALCIUM CARBONATE [Concomitant]
  23. CARTIA XT [Concomitant]

REACTIONS (1)
  - PNEUMONIA [None]
